FAERS Safety Report 7880950-4 (Version None)
Quarter: 2011Q4

REPORT INFORMATION
  Report Type: 
  Country: None (occurrence: None)
  Receive Date: 20111101
  Receipt Date: 20111025
  Transmission Date: 20120403
  Serious: Yes (Other)
  Sender: FDA-Public Use
  Company Number: US-BAXTER-2011BH034064

PATIENT
  Sex: Female
  Weight: 2 kg

DRUGS (2)
  1. DOXORUBICIN HCL [Suspect]
     Indication: MATERNAL EXPOSURE DURING PREGNANCY
     Route: 064
     Dates: start: 19790519, end: 19790906
  2. CYCLOPHOSPHAMIDE [Suspect]
     Indication: MATERNAL EXPOSURE DURING PREGNANCY
     Route: 064
     Dates: start: 19790519, end: 19790906

REACTIONS (4)
  - ANAL ATRESIA [None]
  - MATERNAL EXPOSURE DURING PREGNANCY [None]
  - FEMALE GENITAL TRACT FISTULA [None]
  - CARDIAC MURMUR [None]
